FAERS Safety Report 5734584-8 (Version None)
Quarter: 2008Q2

REPORT INFORMATION
  Report Type: 
  Country: None (occurrence: None)
  Receive Date: 20080508
  Receipt Date: 20080508
  Transmission Date: 20081010
  Serious: No
  Sender: FDA-Public Use
  Company Number: None

PATIENT
  Age: 69 Year
  Sex: Female
  Weight: 68.0396 kg

DRUGS (1)
  1. CREST PRO-HEALTH MOUTHWASH PROCTER+GAMBLE [Suspect]
     Dosage: 2 TABLESPOONS TWICE A DAY
     Dates: start: 20080101, end: 20080508

REACTIONS (5)
  - GINGIVAL PAIN [None]
  - SINUS DISORDER [None]
  - SWELLING [None]
  - TOOTH DISCOLOURATION [None]
  - TOOTH DISORDER [None]
